FAERS Safety Report 5655766-X (Version None)
Quarter: 2008Q1

REPORT INFORMATION
  Report Type: 
  Country: None (occurrence: None)
  Receive Date: 20080307
  Receipt Date: 20080226
  Transmission Date: 20080703
  Serious: Yes (Other)
  Sender: FDA-Public Use
  Company Number: IE-PFIZER INC-2007104615

PATIENT
  Sex: Male
  Weight: 83 kg

DRUGS (3)
  1. CHANTIX [Suspect]
     Indication: SMOKING CESSATION THERAPY
     Route: 048
     Dates: start: 20070811, end: 20070820
  2. LITHIUM CARBONATE [Concomitant]
     Route: 048
  3. CIPRAMIL [Concomitant]
     Route: 048

REACTIONS (3)
  - DEPRESSION [None]
  - FATIGUE [None]
  - POOR QUALITY SLEEP [None]
